FAERS Safety Report 15227837 (Version 1)
Quarter: 2018Q3

REPORT INFORMATION
  Report Type: Spontaneous
  Country: GB (occurrence: GB)
  Receive Date: 20180801
  Receipt Date: 20180801
  Transmission Date: 20181010
  Serious: Yes (Other)
  Sender: FDA-Public Use
  Company Number: GB-ASTRAZENECA-2018SE94790

PATIENT
  Age: 76 Year
  Sex: Female

DRUGS (3)
  1. LYNPARZA [Suspect]
     Active Substance: OLAPARIB
     Route: 048
     Dates: start: 201805
  2. LYNPARZA [Suspect]
     Active Substance: OLAPARIB
     Route: 048
     Dates: start: 20180528, end: 20180604
  3. TRIMETHOPRIM. [Suspect]
     Active Substance: TRIMETHOPRIM
     Route: 065

REACTIONS (4)
  - Hepatic enzyme increased [Recovered/Resolved]
  - Blood creatinine increased [Unknown]
  - Liver function test abnormal [Unknown]
  - Glomerular filtration rate decreased [Unknown]

NARRATIVE: CASE EVENT DATE: 20180409
